FAERS Safety Report 25357404 (Version 3)
Quarter: 2025Q3

REPORT INFORMATION
  Report Type: Spontaneous
  Country: JP (occurrence: JP)
  Receive Date: 20250526
  Receipt Date: 20250809
  Transmission Date: 20251021
  Serious: Yes (Hospitalization, Other)
  Sender: ALEXION PHARMACEUTICALS
  Company Number: JP-ASTRAZENECA-250049995_013120_P_1

PATIENT
  Age: 68 Year

DRUGS (2)
  1. DURVALUMAB [Suspect]
     Active Substance: DURVALUMAB
     Indication: Hepatocellular carcinoma
     Dosage: 1500 MILLIGRAM, Q4W
     Dates: start: 20250203, end: 20250303
  2. TREMELIMUMAB [Suspect]
     Active Substance: TREMELIMUMAB
     Indication: Hepatocellular carcinoma
     Dates: start: 20250203, end: 20250303

REACTIONS (7)
  - Immune-mediated renal disorder [Recovering/Resolving]
  - Metastases to peritoneum [Unknown]
  - Gastrointestinal hypomotility [Unknown]
  - Dehydration [Unknown]
  - Vomiting [Unknown]
  - Urine output decreased [Unknown]
  - Headache [Unknown]

NARRATIVE: CASE EVENT DATE: 20250303
